FAERS Safety Report 21887533 (Version 1)
Quarter: 2023Q1

REPORT INFORMATION
  Report Type: Other
  Country: US (occurrence: None)
  Receive Date: 20230120
  Receipt Date: 20230120
  Transmission Date: 20230418
  Serious: Yes (Other)
  Sender: FDA-Public Use
  Company Number: US-ROCHE-3266822

PATIENT
  Age: 70 Year
  Sex: Male

DRUGS (2)
  1. ROZLYTREK [Suspect]
     Active Substance: ENTRECTINIB
     Indication: Neoplasm malignant
     Dosage: TAKE 3 CAPSULE(S) BY MOUTH EVERY DAY
     Route: 048
  2. ROZLYTREK [Suspect]
     Active Substance: ENTRECTINIB
     Indication: Cholangiocarcinoma

REACTIONS (6)
  - Syncope [Unknown]
  - Confusional state [Unknown]
  - Visual impairment [Unknown]
  - Hypotension [Unknown]
  - Troponin increased [Unknown]
  - Off label use [Unknown]
